FAERS Safety Report 15963303 (Version 1)
Quarter: 2019Q1

REPORT INFORMATION
  Report Type: Spontaneous
  Country: US (occurrence: US)
  Receive Date: 20190214
  Receipt Date: 20190214
  Transmission Date: 20190417
  Serious: Yes (Hospitalization)
  Sender: FDA-Public Use
  Company Number: US-GLAXOSMITHKLINE-US2019GSK025504

PATIENT
  Sex: Male

DRUGS (3)
  1. TRELEGY ELLIPTA [Interacting]
     Active Substance: FLUTICASONE FUROATE\UMECLIDINIUM BROMIDE\VILANTEROL TRIFENATATE
     Dosage: UNK
     Route: 055
     Dates: start: 201807
  2. ANORO ELLIPTA [Suspect]
     Active Substance: UMECLIDINIUM BROMIDE\VILANTEROL TRIFENATATE
     Dosage: UNK
     Dates: start: 201807
  3. INCRUSE ELLIPTA [Interacting]
     Active Substance: UMECLIDINIUM BROMIDE
     Dosage: UNK
     Route: 055
     Dates: start: 201807

REACTIONS (4)
  - Overdose [Unknown]
  - Dyspnoea [Unknown]
  - Labelled drug-drug interaction medication error [Unknown]
  - Rib fracture [Unknown]
